FAERS Safety Report 16242994 (Version 1)
Quarter: 2019Q2

REPORT INFORMATION
  Report Type: Spontaneous
  Country: ES (occurrence: ES)
  Receive Date: 20190426
  Receipt Date: 20190426
  Transmission Date: 20190711
  Serious: Yes (Hospitalization, Other)
  Sender: FDA-Public Use
  Company Number: ES-BAYER-2019-078663

PATIENT
  Age: 57 Year
  Sex: Female

DRUGS (1)
  1. ADEMPAS [Suspect]
     Active Substance: RIOCIGUAT
     Indication: PULMONARY ARTERIAL HYPERTENSION
     Dosage: 2 MG, TID
     Route: 048
     Dates: start: 2015

REACTIONS (3)
  - Cushing^s syndrome [Recovering/Resolving]
  - Hypercorticoidism [Recovering/Resolving]
  - Pituitary tumour benign [Recovering/Resolving]

NARRATIVE: CASE EVENT DATE: 2016
